FAERS Safety Report 6822447-6 (Version None)
Quarter: 2010Q3

REPORT INFORMATION
  Report Type: 
  Country: None (occurrence: None)
  Receive Date: 20100707
  Receipt Date: 20100707
  Transmission Date: 20110219
  Serious: No
  Sender: FDA-Public Use
  Company Number: None

PATIENT
  Age: 56 Year
  Sex: Female
  Weight: 81.6475 kg

DRUGS (2)
  1. CLARINEX-D 12 HOUR [Suspect]
     Indication: MULTIPLE ALLERGIES
     Dosage: 1 TABLET TWICE DAILY
     Dates: start: 20100702, end: 20100704
  2. CLARINEX-D 12 HOUR [Suspect]
     Indication: SINUSITIS
     Dosage: 1 TABLET TWICE DAILY
     Dates: start: 20100702, end: 20100704

REACTIONS (4)
  - FEELING ABNORMAL [None]
  - MALAISE [None]
  - NAUSEA [None]
  - TREMOR [None]
